FAERS Safety Report 6227722-4 (Version None)
Quarter: 2009Q2

REPORT INFORMATION
  Report Type: 
  Country: None (occurrence: None)
  Receive Date: 20090612
  Receipt Date: 20090602
  Transmission Date: 20091009
  Serious: Yes (Other)
  Sender: FDA-Public Use
  Company Number: US-WATSON-2009-04064

PATIENT
  Sex: Male

DRUGS (2)
  1. DIPHENHYDRAMINE HCL [Suspect]
     Indication: DRUG ABUSE
     Dosage: UNK
  2. DEXTROMETHORPHAN HYDROBROMIDE [Suspect]
     Indication: DRUG ABUSE
     Dosage: UNK

REACTIONS (2)
  - DRUG ABUSE [None]
  - OVERDOSE [None]
